FAERS Safety Report 17908172 (Version 2)
Quarter: 2020Q3

REPORT INFORMATION
  Report Type: Report from Study
  Country: RU (occurrence: RU)
  Receive Date: 20200617
  Receipt Date: 20200710
  Transmission Date: 20201103
  Serious: Yes (Death, Other)
  Sender: FDA-Public Use
  Company Number: NVSC2020RU167733

PATIENT
  Age: 60 Year

DRUGS (1)
  1. ILARIS [Suspect]
     Active Substance: CANAKINUMAB
     Indication: COVID-19 PNEUMONIA
     Dosage: 150 MG
     Route: 065
     Dates: start: 20200508

REACTIONS (4)
  - Acute respiratory distress syndrome [Fatal]
  - Pulmonary oedema [Fatal]
  - COVID-19 [Fatal]
  - Peripheral venous disease [Fatal]
